FAERS Safety Report 4380789-0 (Version None)
Quarter: 2004Q2

REPORT INFORMATION
  Report Type: 
  Country: None (occurrence: None)
  Receive Date: 20040616
  Receipt Date: 20040602
  Transmission Date: 20050107
  Serious: Yes (Other)
  Sender: FDA-Public Use
  Company Number: MAG-2004-0000269

PATIENT
  Age: 45 Year
  Sex: Male

DRUGS (3)
  1. POVIDONE IODINE [Suspect]
     Indication: BURNS THIRD DEGREE
     Dosage: TOPICAL
     Route: 061
  2. POVIDONE IODINE [Suspect]
     Indication: BURNS THIRD DEGREE
     Dosage: TOPICAL
     Route: 061
  3. GEBEN(SULFADIAZINE SILVER) [Concomitant]

REACTIONS (3)
  - BRADYCARDIA [None]
  - ENDOCARDITIS [None]
  - THERAPEUTIC AGENT TOXICITY [None]
